FAERS Safety Report 17892604 (Version 1)
Quarter: 2020Q2

REPORT INFORMATION
  Report Type: Spontaneous
  Country: US (occurrence: US)
  Receive Date: 20200612
  Receipt Date: 20200612
  Transmission Date: 20200714
  Serious: Yes (Other)
  Sender: FDA-Public Use
  Company Number: US-GILEAD-2020-0470948

PATIENT
  Age: 62 Year
  Sex: Male
  Weight: 95.6 kg

DRUGS (18)
  1. REMDESIVIR. [Suspect]
     Active Substance: REMDESIVIR
     Indication: COVID-19
     Dosage: 200 MG, QD
     Route: 042
     Dates: start: 20200531, end: 20200531
  2. REMDESIVIR. [Suspect]
     Active Substance: REMDESIVIR
     Dosage: 100 UNK
     Route: 042
     Dates: start: 20200601, end: 20200601
  3. ACETAMINOPHEN. [Concomitant]
     Active Substance: ACETAMINOPHEN
  4. D50W [Concomitant]
  5. HYDROMORPHONE [Concomitant]
     Active Substance: HYDROMORPHONE
  6. ACETYLCYSTEINE. [Concomitant]
     Active Substance: ACETYLCYSTEINE
  7. ALBUTEROL [SALBUTAMOL] [Concomitant]
     Active Substance: ALBUTEROL
  8. CEFTRIAXONE. [Concomitant]
     Active Substance: CEFTRIAXONE
  9. ASPIRIN [ACETYLSALICYLIC ACID] [Concomitant]
     Active Substance: ASPIRIN
  10. AZITHROMYCIN ANHYDROUS. [Concomitant]
     Active Substance: AZITHROMYCIN ANHYDROUS
  11. PROPOFOL. [Concomitant]
     Active Substance: PROPOFOL
  12. ETOMIDATE. [Concomitant]
     Active Substance: ETOMIDATE
  13. ROCURONIUM [Concomitant]
     Active Substance: ROCURONIUM BROMIDE
  14. INSULIN LISPRO [Concomitant]
     Active Substance: INSULIN LISPRO
  15. SODIUM CHLORIDE. [Concomitant]
     Active Substance: SODIUM CHLORIDE
  16. ENOXAPARIN [Concomitant]
     Active Substance: ENOXAPARIN
  17. IPRATROPIUM [Concomitant]
     Active Substance: IPRATROPIUM
  18. METHYLPREDNISOLONE. [Concomitant]
     Active Substance: METHYLPREDNISOLONE

REACTIONS (3)
  - Acute kidney injury [Not Recovered/Not Resolved]
  - Blood creatinine increased [Not Recovered/Not Resolved]
  - Shock [Not Recovered/Not Resolved]

NARRATIVE: CASE EVENT DATE: 20200601
